FAERS Safety Report 7804494-0 (Version None)
Quarter: 2011Q4

REPORT INFORMATION
  Report Type: 
  Country: None (occurrence: None)
  Receive Date: 20111010
  Receipt Date: 20110927
  Transmission Date: 20120403
  Serious: Yes (Hospitalization, Other)
  Sender: FDA-Public Use
  Company Number: PHHY2011US64437

PATIENT
  Age: 80 Year
  Sex: Female

DRUGS (4)
  1. EXFORGE [Suspect]
     Dosage: 0.5 DF, HALF OF EXFORGE
  2. EXFORGE [Suspect]
     Dosage: 1 DF, QD
  3. LOVASTATIN [Concomitant]
     Dosage: UNK UKN, UNK
  4. VALIUM [Concomitant]
     Dosage: UNK UKN, UNK

REACTIONS (3)
  - CEREBROVASCULAR ACCIDENT [None]
  - FATIGUE [None]
  - HYPOTENSION [None]
